FAERS Safety Report 6925807-8 (Version None)
Quarter: 2010Q3

REPORT INFORMATION
  Report Type: 
  Country: None (occurrence: None)
  Receive Date: 20100810
  Receipt Date: 20100726
  Transmission Date: 20110219
  Serious: Yes (Hospitalization)
  Sender: FDA-Public Use
  Company Number: 2010002531

PATIENT
  Sex: Female

DRUGS (14)
  1. TARCEVA [Suspect]
     Indication: LUNG ADENOCARCINOMA
     Dosage: (QD), ORAL
     Route: 048
     Dates: start: 20100527, end: 20100610
  2. AMLODIPINE [Concomitant]
  3. FAMOTIDINE [Concomitant]
  4. DECADRON [Concomitant]
  5. MOBIC [Concomitant]
  6. DEPAS (ETIZOLAM) [Concomitant]
  7. ZONISAMIDE [Concomitant]
  8. NIZATIDINE [Concomitant]
  9. BUP-4 (PROPIVERINE HYDROCHLORIDE) [Concomitant]
  10. SELBEX (TEPRENONE) [Concomitant]
  11. TEGRETOL [Concomitant]
  12. DIAPP (DIAZEPAM) [Concomitant]
  13. ACTONEL [Concomitant]
  14. DIAZEPAM [Concomitant]

REACTIONS (3)
  - BLISTER [None]
  - DRUG RASH WITH EOSINOPHILIA AND SYSTEMIC SYMPTOMS [None]
  - ECZEMA [None]
